FAERS Safety Report 5627147-6 (Version None)
Quarter: 2008Q1

REPORT INFORMATION
  Report Type: 
  Country: None (occurrence: None)
  Receive Date: 20080212
  Receipt Date: 20080212
  Transmission Date: 20080703
  Serious: Yes (Hospitalization, Other)
  Sender: FDA-Public Use
  Company Number: None

PATIENT
  Age: 37 Year
  Sex: Female
  Weight: 49.8957 kg

DRUGS (1)
  1. WELLBUTRIN XL [Suspect]
     Indication: ANXIETY
     Dosage: 300MG ONCE A DAY PO
     Route: 048

REACTIONS (1)
  - GRAND MAL CONVULSION [None]
